FAERS Safety Report 19162379 (Version 1)
Quarter: 2021Q2

REPORT INFORMATION
  Report Type: Spontaneous
  Country: US (occurrence: US)
  Receive Date: 20210420
  Receipt Date: 20210420
  Transmission Date: 20210717
  Serious: Yes (Other)
  Sender: FDA-Public Use
  Company Number: US-PURDUE-USA-2020-0190764

PATIENT
  Sex: Male

DRUGS (2)
  1. OXYCODONE/ ACETAMINOPHEN TABLETS [Suspect]
     Active Substance: ACETAMINOPHEN\OXYCODONE HYDROCHLORIDE
     Indication: PAIN
     Dosage: UNK
     Route: 048
  2. HYDROCODONE BITARTRATE AND ACETAMINOPHEN [Suspect]
     Active Substance: ACETAMINOPHEN\HYDROCODONE BITARTRATE
     Indication: PAIN
     Dosage: 1?2 TABLETS EVERY 4?6 HOURS, PRN
     Route: 048

REACTIONS (9)
  - Personality change [Unknown]
  - Fear [Unknown]
  - General physical health deterioration [Unknown]
  - Drug dependence [Unknown]
  - Depression [Unknown]
  - Self esteem decreased [Unknown]
  - Emotional distress [Unknown]
  - Overdose [Unknown]
  - Anxiety [Unknown]
